FAERS Safety Report 7714119-0 (Version None)
Quarter: 2011Q3

REPORT INFORMATION
  Report Type: 
  Country: None (occurrence: None)
  Receive Date: 20110829
  Receipt Date: 20110822
  Transmission Date: 20111222
  Serious: Yes (Other)
  Sender: FDA-Public Use
  Company Number: US-BRISTOL-MYERS SQUIBB COMPANY-15747017

PATIENT
  Age: 61 Year
  Sex: Female
  Weight: 63 kg

DRUGS (3)
  1. AVALIDE [Suspect]
     Indication: HYPERTENSION
     Route: 048
     Dates: start: 20000101, end: 20110201
  2. PREMPRO [Concomitant]
     Dosage: 0.625 /2.5  UNITS NOS
  3. CLONIDINE [Concomitant]

REACTIONS (4)
  - ANEURYSM [None]
  - BURSITIS [None]
  - BLOOD PRESSURE SYSTOLIC INCREASED [None]
  - WEIGHT INCREASED [None]
